FAERS Safety Report 7151755-7 (Version None)
Quarter: 2010Q4

REPORT INFORMATION
  Report Type: 
  Country: None (occurrence: None)
  Receive Date: 20101210
  Receipt Date: 20101201
  Transmission Date: 20110411
  Serious: Yes (Other)
  Sender: FDA-Public Use
  Company Number: US-SANOFI-AVENTIS-2010SA044853

PATIENT
  Sex: Male

DRUGS (2)
  1. LOVENOX [Suspect]
     Indication: HYPERCOAGULATION
     Dosage: 1 MG/KG
     Route: 065
  2. LOVENOX [Suspect]
     Dosage: 1 MG/KG
     Route: 065

REACTIONS (6)
  - ACTIVATED PARTIAL THROMBOPLASTIN TIME ABNORMAL [None]
  - ANTICOAGULATION DRUG LEVEL ABOVE THERAPEUTIC [None]
  - DRUG INEFFECTIVE [None]
  - INJECTION SITE PAIN [None]
  - INTERNATIONAL NORMALISED RATIO FLUCTUATION [None]
  - PRODUCT COUNTERFEIT [None]
